FAERS Safety Report 11442336 (Version 2)
Quarter: 2015Q4

REPORT INFORMATION
  Report Type: Spontaneous
  Country: JP (occurrence: JP)
  Receive Date: 20150901
  Receipt Date: 20151027
  Transmission Date: 20160304
  Serious: Yes (Other)
  Sender: FDA-Public Use
  Company Number: JP-JNJFOC-20150817438

PATIENT
  Sex: Female

DRUGS (1)
  1. RISPERDAL [Suspect]
     Active Substance: RISPERIDONE
     Indication: DEPRESSION
     Route: 048
     Dates: start: 2010

REACTIONS (5)
  - Amenorrhoea [Unknown]
  - Pain [Unknown]
  - Hyperprolactinaemia [Unknown]
  - Mastitis [Unknown]
  - Product use issue [Unknown]
